FAERS Safety Report 9231480 (Version 1)
Quarter: 2013Q2

REPORT INFORMATION
  Report Type: Spontaneous
  Country: US (occurrence: US)
  Receive Date: 20130415
  Receipt Date: 20130415
  Transmission Date: 20140414
  Serious: Yes (Other)
  Sender: FDA-Public Use
  Company Number: US-GLAXOSMITHKLINE-A1019877A

PATIENT
  Sex: Male

DRUGS (3)
  1. MEPRON [Suspect]
     Indication: PRODUCT USED FOR UNKNOWN INDICATION
     Route: 065
     Dates: start: 20121012
  2. UNSPECIFIED MEDICATIONS [Concomitant]
  3. CHEMOTHERAPY [Concomitant]

REACTIONS (3)
  - Chronic myeloid leukaemia [Unknown]
  - Neutropenia [Unknown]
  - Tooth extraction [Unknown]
